FAERS Safety Report 6704448-1 (Version None)
Quarter: 2010Q2

REPORT INFORMATION
  Report Type: 
  Country: None (occurrence: None)
  Receive Date: 20100430
  Receipt Date: 20100421
  Transmission Date: 20101027
  Serious: Yes (Other)
  Sender: FDA-Public Use
  Company Number: CA-JNJFOC-20100406201

PATIENT
  Sex: Female
  Weight: 78.9 kg

DRUGS (5)
  1. REMICADE [Suspect]
     Indication: RHEUMATOID ARTHRITIS
     Route: 042
  2. REMICADE [Suspect]
     Route: 042
  3. DIDRONEL [Concomitant]
  4. BENADRYL [Concomitant]
     Indication: PREMEDICATION
  5. BENADRYL [Concomitant]

REACTIONS (5)
  - CHEST DISCOMFORT [None]
  - FLUSHING [None]
  - HAND FRACTURE [None]
  - HYPERSENSITIVITY [None]
  - INFUSION RELATED REACTION [None]
